FAERS Safety Report 7755167-4 (Version None)
Quarter: 2011Q3

REPORT INFORMATION
  Report Type: 
  Country: None (occurrence: None)
  Receive Date: 20110916
  Receipt Date: 20110913
  Transmission Date: 20111222
  Serious: No
  Sender: FDA-Public Use
  Company Number: US-PFIZER INC-2011216874

PATIENT
  Sex: Female
  Weight: 86.168 kg

DRUGS (7)
  1. PREMPRO [Suspect]
     Indication: ASTHENIA
  2. PREMPRO [Suspect]
     Indication: OFF LABEL USE
     Dosage: 0.45/1.5MG,DAILY
     Dates: start: 20110827
  3. PREMPRO [Suspect]
     Indication: DEPRESSION
  4. LOVASTATIN [Concomitant]
     Indication: BLOOD CHOLESTEROL INCREASED
     Dosage: 40 MG, DAILY
  5. VITAMIN TAB [Concomitant]
     Dosage: UNK,DAILY
  6. COD-LIVER OIL [Concomitant]
     Dosage: UNK
  7. ACETYLSALICYLIC ACID [Concomitant]
     Dosage: 81 MG, DAILY

REACTIONS (1)
  - FEELING JITTERY [None]
